FAERS Safety Report 4547220-3 (Version None)
Quarter: 2005Q1

REPORT INFORMATION
  Report Type: 
  Country: None (occurrence: None)
  Receive Date: 20050107
  Receipt Date: 20041228
  Transmission Date: 20050727
  Serious: Yes (Other)
  Sender: FDA-Public Use
  Company Number: US-JNJFOC-20050100053

PATIENT
  Age: 36 Year
  Sex: Female
  Weight: 71.22 kg

DRUGS (6)
  1. TOPAMAX [Suspect]
     Dosage: 100 MG IN THE MORNING, 200 MG IN THE EVENING
  2. TOPAMAX [Suspect]
  3. PAXIL [Concomitant]
     Indication: ANXIETY
  4. METHADONE HCL [Concomitant]
     Indication: HEADACHE
  5. SYNTHROID [Concomitant]
  6. DILANTIN [Concomitant]

REACTIONS (6)
  - CONVULSION [None]
  - DRUG EXPOSURE DURING PREGNANCY [None]
  - DRUG EXPOSURE VIA BREAST MILK [None]
  - PREMATURE BABY [None]
  - PREMATURE LABOUR [None]
  - WEIGHT DECREASED [None]
